FAERS Safety Report 13941829 (Version 1)
Quarter: 2017Q3

REPORT INFORMATION
  Report Type: Spontaneous
  Country: US (occurrence: None)
  Receive Date: 20170907
  Receipt Date: 20170907
  Transmission Date: 20171127
  Serious: No
  Sender: FDA-Public Use
  Company Number: None

PATIENT
  Age: 74 Year
  Sex: Female

DRUGS (1)
  1. FORTEO [Suspect]
     Active Substance: TERIPARATIDE

REACTIONS (7)
  - Disorientation [None]
  - Neck pain [None]
  - Urine abnormality [None]
  - Ear pain [None]
  - Pain in extremity [None]
  - Headache [None]
  - Temperature intolerance [None]

NARRATIVE: CASE EVENT DATE: 20170816
